FAERS Safety Report 6993110-6 (Version None)
Quarter: 2010Q3

REPORT INFORMATION
  Report Type: 
  Country: None (occurrence: None)
  Receive Date: 20100917
  Receipt Date: 20100517
  Transmission Date: 20110219
  Serious: No
  Sender: FDA-Public Use
  Company Number: US-ASTRAZENECA-2010SE22572

PATIENT
  Sex: Female
  Weight: 86.2 kg

DRUGS (3)
  1. SEROQUEL [Suspect]
     Indication: BIPOLAR DISORDER
     Route: 048
  2. SEROQUEL [Suspect]
     Indication: INSOMNIA
     Route: 048
  3. AMBIEN [Concomitant]

REACTIONS (5)
  - DIZZINESS [None]
  - DYSPHONIA [None]
  - DYSPNOEA [None]
  - INCREASED APPETITE [None]
  - WEIGHT INCREASED [None]
